FAERS Safety Report 7859539-9 (Version None)
Quarter: 2011Q4

REPORT INFORMATION
  Report Type: 
  Country: None (occurrence: None)
  Receive Date: 20111026
  Receipt Date: 20111026
  Transmission Date: 20120403
  Serious: Yes (Life-Threatening, Hospitalization)
  Sender: FDA-Public Use
  Company Number: None

PATIENT
  Age: 65 Year
  Sex: Male
  Weight: 51.7101 kg

DRUGS (1)
  1. ADALIMUMAB [Suspect]
     Indication: PNEUMONIA

REACTIONS (3)
  - ESCHERICHIA SEPSIS [None]
  - PYREXIA [None]
  - PNEUMONIA [None]
